FAERS Safety Report 4429937-4 (Version None)
Quarter: 2004Q3

REPORT INFORMATION
  Report Type: 
  Country: None (occurrence: None)
  Receive Date: 20040817
  Receipt Date: 20040817
  Transmission Date: 20050211
  Serious: No
  Sender: FDA-Public Use
  Company Number: None

PATIENT
  Age: 50 Year
  Sex: Female
  Weight: 114.3065 kg

DRUGS (1)
  1. GLIPIZIDE [Suspect]
     Indication: DIABETES MELLITUS
     Dosage: DAILY TABLET

REACTIONS (1)
  - DRUG INEFFECTIVE [None]
